FAERS Safety Report 5577219-X (Version None)
Quarter: 2007Q4

REPORT INFORMATION
  Report Type: 
  Country: None (occurrence: None)
  Receive Date: 20071130
  Receipt Date: 20070726
  Transmission Date: 20080405
  Serious: No
  Sender: FDA-Public Use
  Company Number: US200707006546

PATIENT
  Age: 61 Year
  Sex: Female

DRUGS (4)
  1. BYETTA [Suspect]
     Indication: TYPE 2 DIABETES MELLITUS
     Dosage: 5 UG, 2/D, SUBCUTANEOUS
     Route: 058
     Dates: start: 20070719
  2. GLYBURIDE AND METFORMIN HCL [Concomitant]
  3. DIOVAN [Concomitant]
  4. LIPITOR [Concomitant]

REACTIONS (4)
  - ABNORMAL DREAMS [None]
  - DECREASED APPETITE [None]
  - INSOMNIA [None]
  - VISUAL DISTURBANCE [None]
